FAERS Safety Report 5010084-8 (Version None)
Quarter: 2006Q2

REPORT INFORMATION
  Report Type: 
  Country: None (occurrence: None)
  Receive Date: 20060523
  Receipt Date: 20060509
  Transmission Date: 20061013
  Serious: Yes (Death, Hospitalization, Other)
  Sender: FDA-Public Use
  Company Number: 2006041353

PATIENT
  Age: 39 Year
  Sex: Female

DRUGS (1)
  1. SUTENT [Suspect]
     Indication: GASTROINTESTINAL STROMAL TUMOUR
     Dosage: 50 MG (50 MG, 1 / DAY), ORAL
     Route: 048
     Dates: start: 20060220, end: 20060314

REACTIONS (9)
  - ABDOMINAL ABSCESS [None]
  - ANAEMIA [None]
  - ASTHENIA [None]
  - CANDIDA SEPSIS [None]
  - DIARRHOEA [None]
  - GASTROINTESTINAL FISTULA [None]
  - POST PROCEDURAL COMPLICATION [None]
  - SEPTIC SHOCK [None]
  - SOMNOLENCE [None]
